FAERS Safety Report 9575008 (Version 3)
Quarter: 2014Q1

REPORT INFORMATION
  Report Type: Spontaneous
  Country: AT (occurrence: AT)
  Receive Date: 20131001
  Receipt Date: 20140213
  Transmission Date: 20141002
  Serious: Yes (Hospitalization)
  Sender: FDA-Public Use
  Company Number: PHHY2013AT108150

PATIENT
  Sex: Male

DRUGS (9)
  1. EBETREXAT [Suspect]
     Indication: RHEUMATOID ARTHRITIS
     Dosage: 10 MG, QW
     Route: 048
     Dates: start: 2005
  2. ANTIHYPERTENSIVES [Concomitant]
  3. ZYLORIC [Concomitant]
  4. FOLSAN [Concomitant]
  5. MAGNESIUM SUPPLEMENTS [Concomitant]
  6. XEFO [Concomitant]
     Dates: end: 201309
  7. SERACTIL [Concomitant]
     Dates: end: 201309
  8. VOLTAREN [Concomitant]
     Dates: end: 201309
  9. POTASSIUM [Concomitant]

REACTIONS (5)
  - Diverticulitis intestinal haemorrhagic [Recovered/Resolved]
  - Colon adenoma [Recovered/Resolved]
  - Blood pressure decreased [Recovered/Resolved]
  - Haemoglobin decreased [Recovered/Resolved]
  - Diverticulitis [Recovered/Resolved]
